FAERS Safety Report 7131638-9 (Version None)
Quarter: 2010Q4

REPORT INFORMATION
  Report Type: 
  Country: None (occurrence: None)
  Receive Date: 20101201
  Receipt Date: 20101123
  Transmission Date: 20110411
  Serious: Yes (Other)
  Sender: FDA-Public Use
  Company Number: US-AMGEN-USASP2010006212

PATIENT

DRUGS (1)
  1. ENBREL [Suspect]
     Indication: PSORIATIC ARTHROPATHY
     Dates: start: 20100430

REACTIONS (5)
  - BURNING SENSATION [None]
  - CONDITION AGGRAVATED [None]
  - GAIT DISTURBANCE [None]
  - HYPOAESTHESIA [None]
  - PSORIATIC ARTHROPATHY [None]
